FAERS Safety Report 7326832-8 (Version None)
Quarter: 2011Q1

REPORT INFORMATION
  Report Type: 
  Country: None (occurrence: None)
  Receive Date: 20110302
  Receipt Date: 20091029
  Transmission Date: 20110831
  Serious: No
  Sender: FDA-Public Use
  Company Number: US-PFIZER INC-2009291152

PATIENT
  Weight: 47.619 kg

DRUGS (1)
  1. DILANTIN-125 [Suspect]
     Indication: EPILEPSY
     Dosage: 200 MG, 2X/DAY

REACTIONS (4)
  - GINGIVAL SWELLING [None]
  - GINGIVAL HYPERTROPHY [None]
  - GINGIVAL HYPERPLASIA [None]
  - GINGIVAL DISORDER [None]
